FAERS Safety Report 21132324 (Version 4)
Quarter: 2022Q4

REPORT INFORMATION
  Report Type: Spontaneous
  Country: US (occurrence: US)
  Receive Date: 20220726
  Receipt Date: 20221122
  Transmission Date: 20230113
  Serious: Yes (Hospitalization)
  Sender: FDA-Public Use
  Company Number: US-PFIZER INC-202201000728

PATIENT
  Age: 55 Year
  Sex: Female
  Weight: 81.633 kg

DRUGS (4)
  1. PAXLOVID [Suspect]
     Active Substance: NIRMATRELVIR\RITONAVIR
     Indication: COVID-19 treatment
     Dosage: 2 DF, 2X/DAY (150MG NIRMATRELVIR 1 BID 100MG RITONAVIR 1 BID)
     Route: 048
     Dates: start: 20220712, end: 20220717
  2. LOSARTAN [Concomitant]
     Active Substance: LOSARTAN
     Indication: Hypertension
     Dosage: UNK
     Dates: start: 20210607
  3. RITUXAN [Concomitant]
     Active Substance: RITUXIMAB
     Dosage: 1000 MG, EVERY 6 MONTHS INITIATE DOSING 2000 MG FOR 2 YEARS
     Dates: start: 20211119
  4. EVUSHELD [Concomitant]
     Active Substance: CILGAVIMAB\TIXAGEVIMAB
     Dosage: UNK

REACTIONS (4)
  - COVID-19 [Recovered/Resolved]
  - Disease recurrence [Recovered/Resolved]
  - Condition aggravated [Recovered/Resolved]
  - Sinusitis [Recovered/Resolved]

NARRATIVE: CASE EVENT DATE: 20220721
